FAERS Safety Report 20159117 (Version 1)
Quarter: 2021Q4

REPORT INFORMATION
  Report Type: Spontaneous
  Country: US (occurrence: US)
  Receive Date: 20211208
  Receipt Date: 20211208
  Transmission Date: 20220303
  Serious: No
  Sender: FDA-Public Use
  Company Number: US-AMERICAN REGENT INC-2021002728

PATIENT
  Sex: Female

DRUGS (3)
  1. VENOFER [Suspect]
     Active Substance: IRON SUCROSE
     Indication: Wound
     Dosage: 100 MILLIGRAM, SINGLE TEST DOSE
     Route: 042
     Dates: start: 20211018, end: 20211018
  2. VENOFER [Suspect]
     Active Substance: IRON SUCROSE
     Indication: Blood iron decreased
     Dosage: 300 MILLIGRAM, SINGLE
     Route: 042
     Dates: start: 20211018, end: 20211018
  3. VENOFER [Suspect]
     Active Substance: IRON SUCROSE
     Indication: Haemorrhage

REACTIONS (3)
  - Hypoaesthesia [Unknown]
  - Peripheral swelling [Unknown]
  - Product use in unapproved indication [Unknown]

NARRATIVE: CASE EVENT DATE: 20211018
